FAERS Safety Report 9254268 (Version 1)
Quarter: 2013Q2

REPORT INFORMATION
  Report Type: Spontaneous
  Country: US (occurrence: None)
  Receive Date: 20130416
  Receipt Date: 20130416
  Transmission Date: 20140414
  Serious: Yes (Other)
  Sender: FDA-Public Use
  Company Number: A13-040

PATIENT
  Age: 11 Year
  Sex: Male
  Weight: 39 kg

DRUGS (6)
  1. ALLERGENIC EXTRACT- POLLEN [Suspect]
     Indication: IMMUNE SYSTEM DISORDER
     Dosage: 1:1, 0.15CC; ONCE, 057
     Dates: start: 20130220
  2. MOLD MIX +MITES, ALK-ABELLO, INC [Suspect]
     Indication: IMMUNE SYSTEM DISORDER
     Dosage: 1:1, 0.15CC; ONCE, 057
     Dates: start: 20130220
  3. ADDERALL [Concomitant]
  4. ABILIFY [Concomitant]
  5. METADATE [Concomitant]
  6. ALLERGENIC EXTRACT- DOG HAIR AND DANDER [Suspect]
     Indication: IMMUNE SYSTEM DISORDER
     Dosage: 1:1, 0.15CC, ONCE, 057
     Dates: start: 20130320

REACTIONS (3)
  - Throat tightness [None]
  - Palatal oedema [None]
  - Dysphonia [None]
